FAERS Safety Report 18385283 (Version 2)
Quarter: 2025Q2

REPORT INFORMATION
  Report Type: Spontaneous
  Country: IT (occurrence: IT)
  Receive Date: 20201014
  Receipt Date: 20250627
  Transmission Date: 20250716
  Serious: Yes (Hospitalization)
  Sender: AUROBINDO
  Company Number: IT-PFM-2020-19122

PATIENT
  Age: 63 Year
  Sex: Female

DRUGS (5)
  1. AZITHROMYCIN [Interacting]
     Active Substance: AZITHROMYCIN
     Indication: COVID-19
     Route: 065
  2. AZITHROMYCIN [Interacting]
     Active Substance: AZITHROMYCIN
     Dosage: 500 MILLIGRAM, ONCE A DAY (500 MG, QD (1/DAY))
     Route: 065
  3. HYDROXYCHLOROQUINE [Interacting]
     Active Substance: HYDROXYCHLOROQUINE
     Indication: COVID-19
     Dosage: 200 MILLIGRAM, ONCE A DAY (200 MG, QD (1/DAY))
     Route: 048
  4. PALMIDROL [Interacting]
     Active Substance: PALMIDROL
     Indication: COVID-19
     Dosage: 1200 MILLIGRAM, ONCE A DAY (1200 MG, QD (1/DAY))
     Route: 065
  5. PREDNISONE [Interacting]
     Active Substance: PREDNISONE
     Indication: COVID-19
     Dosage: 25 MILLIGRAM, ONCE A DAY (25 MG, QD (1/DAY))
     Route: 065

REACTIONS (5)
  - Condition aggravated [Unknown]
  - Drug interaction [Unknown]
  - Drug ineffective for unapproved indication [Unknown]
  - Product use in unapproved indication [Unknown]
  - Off label use [Unknown]
